FAERS Safety Report 7898556-X (Version None)
Quarter: 2011Q4

REPORT INFORMATION
  Report Type: 
  Country: None (occurrence: None)
  Receive Date: 20111107
  Receipt Date: 20111102
  Transmission Date: 20120403
  Serious: Yes (Life-Threatening, Hospitalization, Other)
  Sender: FDA-Public Use
  Company Number: DE-ABBOTT-11P-062-0871172-00

PATIENT
  Age: 73 Year
  Sex: Male

DRUGS (1)
  1. VALPROIC ACID [Suspect]
     Indication: STATUS EPILEPTICUS
     Route: 042
     Dates: start: 20110813, end: 20110814

REACTIONS (2)
  - ELECTROCARDIOGRAM QT PROLONGED [None]
  - CONDITION AGGRAVATED [None]
